FAERS Safety Report 5929484-4 (Version None)
Quarter: 2008Q3

REPORT INFORMATION
  Report Type: 
  Country: None (occurrence: None)
  Receive Date: 20080924
  Receipt Date: 20080812
  Transmission Date: 20090109
  Serious: Yes (Other)
  Sender: FDA-Public Use
  Company Number: A03200801609

PATIENT
  Age: 27 Year
  Sex: Female
  Weight: 76.2043 kg

DRUGS (4)
  1. AMBIEN CR [Suspect]
     Dosage: 12.5 MG HS - ORAL
     Route: 048
     Dates: start: 20080416, end: 20080416
  2. THYROID TAB [Concomitant]
  3. ESCITALOPRAM OXALATE [Concomitant]
  4. MULTI-VITAMINS [Concomitant]

REACTIONS (4)
  - FEELING DRUNK [None]
  - GAIT DISTURBANCE [None]
  - HALLUCINATION, VISUAL [None]
  - VISION BLURRED [None]
